FAERS Safety Report 7623475-3 (Version None)
Quarter: 2011Q3

REPORT INFORMATION
  Report Type: 
  Country: None (occurrence: None)
  Receive Date: 20110720
  Receipt Date: 20110715
  Transmission Date: 20111222
  Serious: Yes (Life-Threatening, Hospitalization, Other)
  Sender: FDA-Public Use
  Company Number: GXKR2011DE02303

PATIENT
  Age: 78 Year
  Sex: Male
  Weight: 111 kg

DRUGS (6)
  1. FUROSEMIDE [Suspect]
     Indication: OEDEMA
     Dosage: UNK MG, QD
     Route: 042
     Dates: start: 20110202, end: 20110206
  2. RAMIPRIL [Suspect]
     Dosage: 10 MG, QD
     Route: 048
     Dates: start: 20101101, end: 20110201
  3. DRUG THERAPY NOS [Concomitant]
  4. RASILEZ (ALISKIREN) [Suspect]
     Dosage: 300-600 MG DAILY
     Route: 048
     Dates: start: 20110202, end: 20110206
  5. HYDROCHLOROTHIAZIDE [Suspect]
     Dosage: 25 MG, QD
     Route: 048
     Dates: start: 20110202, end: 20110208
  6. PLAVIX [Suspect]
     Dosage: 75 MG, QD
     Route: 048
     Dates: start: 20110202, end: 20110209

REACTIONS (1)
  - RENAL FAILURE ACUTE [None]
